FAERS Safety Report 9223610 (Version 3)
Quarter: 2013Q2

REPORT INFORMATION
  Report Type: Report from Study
  Country: BR (occurrence: BR)
  Receive Date: 20130410
  Receipt Date: 20130614
  Transmission Date: 20140414
  Serious: Yes (Other)
  Sender: FDA-Public Use
  Company Number: PHHY2013BR034450

PATIENT
  Sex: Female
  Weight: 72 kg

DRUGS (6)
  1. ENABLEX [Suspect]
     Indication: URINARY TRACT INFECTION
     Dosage: 1 DF, QD
     Route: 048
     Dates: start: 2009
  2. LOSARTAN [Concomitant]
     Indication: HYPERTENSION
     Dosage: 2 DF, UNK
     Route: 048
  3. HYDROCHLOROTHIAZIDE [Concomitant]
     Indication: DIURETIC THERAPY
     Dosage: 1 DF, DAILY
     Route: 048
  4. ALLOPURINOL [Concomitant]
     Indication: IRRITABLE BOWEL SYNDROME
     Dosage: 1 DF, DAILY
     Route: 048
  5. JANUMET [Concomitant]
     Indication: DIABETES MELLITUS
     Dosage: 1 DF, DAILY
     Route: 048
  6. ASPIRIN CHILDREN [Concomitant]
     Indication: HYPOPERFUSION
     Dosage: 1 DF, DAILY

REACTIONS (7)
  - Breast cancer [Recovering/Resolving]
  - Hypertonic bladder [Not Recovered/Not Resolved]
  - Irritable bowel syndrome [Not Recovered/Not Resolved]
  - Diarrhoea [Recovering/Resolving]
  - Hypoperfusion [Recovering/Resolving]
  - Bacterial infection [Unknown]
  - Urinary tract infection [Recovering/Resolving]
